FAERS Safety Report 20053145 (Version 1)
Quarter: 2021Q4

REPORT INFORMATION
  Report Type: Spontaneous
  Country: US (occurrence: US)
  Receive Date: 20211110
  Receipt Date: 20211110
  Transmission Date: 20220303
  Serious: No
  Sender: FDA-Public Use
  Company Number: US-ALKERMES INC.-ALK-2021-005734

PATIENT
  Sex: Female

DRUGS (1)
  1. VIVITROL [Suspect]
     Active Substance: NALTREXONE
     Indication: Alcoholism
     Dosage: 380 MILLIGRAM, QMO
     Route: 030
     Dates: start: 20211001

REACTIONS (7)
  - Pain [Recovered/Resolved]
  - Aphasia [Recovered/Resolved]
  - Eye movement disorder [Recovered/Resolved]
  - Panic attack [Recovered/Resolved]
  - Alcoholism [Not Recovered/Not Resolved]
  - Muscle spasms [Recovered/Resolved]
  - Seizure [Recovered/Resolved]

NARRATIVE: CASE EVENT DATE: 20210101
